FAERS Safety Report 7409740-3 (Version None)
Quarter: 2011Q2

REPORT INFORMATION
  Report Type: 
  Country: None (occurrence: None)
  Receive Date: 20110412
  Receipt Date: 20110404
  Transmission Date: 20111010
  Serious: Yes (Hospitalization)
  Sender: FDA-Public Use
  Company Number: KR-CEPHALON-2011001624

PATIENT
  Sex: Female

DRUGS (7)
  1. PHAZYME [Concomitant]
     Dates: start: 20110322
  2. RITUXIMAB [Concomitant]
     Indication: DIFFUSE LARGE B-CELL LYMPHOMA REFRACTORY
     Dates: start: 20110322, end: 20110322
  3. METOCLOPRAMIDE [Concomitant]
     Dates: start: 20110324
  4. BENDAMUSTINE HCL [Suspect]
     Indication: DIFFUSE LARGE B-CELL LYMPHOMA REFRACTORY
     Route: 042
     Dates: start: 20110323
  5. FAMOTIDINE [Concomitant]
     Dates: start: 20110324
  6. ASPIRIN [Concomitant]
     Dates: start: 20110205
  7. GABAPENTIN [Concomitant]
     Route: 048
     Dates: start: 20100915

REACTIONS (2)
  - URINARY RETENTION [None]
  - CONSTIPATION [None]
